FAERS Safety Report 6886545-3 (Version None)
Quarter: 2010Q3

REPORT INFORMATION
  Report Type: 
  Country: None (occurrence: None)
  Receive Date: 20100730
  Receipt Date: 20100720
  Transmission Date: 20110219
  Serious: Yes (Hospitalization)
  Sender: FDA-Public Use
  Company Number: US-BIOGENIDEC-2010BI008407

PATIENT
  Age: 52 Year
  Sex: Female
  Weight: 99 kg

DRUGS (6)
  1. TYSABRI [Suspect]
     Indication: MULTIPLE SCLEROSIS
     Route: 042
     Dates: start: 20091209
  2. PAXIL [Concomitant]
     Indication: ANXIETY
  3. KLONOPIN [Concomitant]
     Indication: ANXIETY
  4. BACLOFEN [Concomitant]
     Indication: MUSCLE SPASMS
  5. VALIUM [Concomitant]
     Indication: MUSCLE SPASMS
  6. SIMVASTIN [Concomitant]
     Indication: BLOOD CHOLESTEROL INCREASED

REACTIONS (9)
  - BACK PAIN [None]
  - DEVICE OCCLUSION [None]
  - FAECAL INCONTINENCE [None]
  - GAIT DISTURBANCE [None]
  - INTERVERTEBRAL DISC PROTRUSION [None]
  - MEMORY IMPAIRMENT [None]
  - MULTIPLE SCLEROSIS RELAPSE [None]
  - POOR VENOUS ACCESS [None]
  - URINARY INCONTINENCE [None]
